FAERS Safety Report 5210950-4 (Version None)
Quarter: 2006Q4

REPORT INFORMATION
  Report Type: 
  Country: None (occurrence: None)
  Receive Date: 20061130
  Receipt Date: 20060719
  Transmission Date: 20070319
  Serious: Yes (Other)
  Sender: FDA-Public Use
  Company Number: WAES 0607USA04113

PATIENT
  Age: 67 Year
  Sex: Female
  Weight: 52.1637 kg

DRUGS (2)
  1. FOSAMAX [Suspect]
     Indication: OSTEOPENIA
     Dosage: 70 MG/WKY/PO
     Route: 048
     Dates: start: 20040301, end: 20060301
  2. PEPCID [Concomitant]

REACTIONS (3)
  - FRACTURE DELAYED UNION [None]
  - JAW FRACTURE [None]
  - OSTEONECROSIS [None]
